FAERS Safety Report 9493462 (Version 4)
Quarter: 2013Q4

REPORT INFORMATION
  Report Type: Spontaneous
  Country: US (occurrence: US)
  Receive Date: 20130902
  Receipt Date: 20131210
  Transmission Date: 20140711
  Serious: Yes (Hospitalization, Other)
  Sender: FDA-Public Use
  Company Number: US-PFIZER INC-2013250108

PATIENT
  Age: 71 Year
  Sex: Female
  Weight: 68.03 kg

DRUGS (5)
  1. SUTENT [Suspect]
     Dosage: 50 MG, CYCLIC (50 MG DAILY 4 WEEKS ON AND 2 WEEKS OFF)
     Dates: start: 20130810
  2. SUTENT [Suspect]
     Dosage: 50 MG, CYCLIC (1 WEEK OFF, 1 WEEK ON, 1 WEEK OFF, 2 WEEKS ON)
     Dates: start: 20131203
  3. REPLESTA [Concomitant]
     Dosage: UNK
  4. VALSARTAN [Concomitant]
     Dosage: UNK
  5. LEVOTHYROXINE [Concomitant]
     Dosage: UNK

REACTIONS (13)
  - Dehydration [Unknown]
  - Tooth abscess [Unknown]
  - Syncope [Unknown]
  - Feeling abnormal [Unknown]
  - Nausea [Recovering/Resolving]
  - Headache [Unknown]
  - Insomnia [Unknown]
  - Dysgeusia [Recovering/Resolving]
  - Fatigue [Unknown]
  - Asthenia [Unknown]
  - Constipation [Unknown]
  - Decreased appetite [Unknown]
  - Blood test abnormal [Unknown]
